FAERS Safety Report 9222710 (Version 1)
Quarter: 2013Q1

REPORT INFORMATION
  Report Type: Spontaneous
  Country: US (occurrence: US)
  Receive Date: 20120914
  Receipt Date: 20120914
  Transmission Date: 20140127
  Serious: Yes (Hospitalization)
  Sender: FDA-Public Use
  Company Number: JPI-P-021202

PATIENT
  Age: 53 Year
  Sex: Female

DRUGS (9)
  1. XYREM (500 MG/ML SOLUTION)(SODIUM OXYBATE) [Suspect]
     Indication: CATAPLEXY
     Dosage: TWO DOSES OF 4.5 GM TAKEN NIGHTLY/AT BEDTIME.
     Route: 048
     Dates: start: 20100616, end: 201202
  2. ARMODAFINIL [Concomitant]
  3. METHYLPHENIDATE HYDROCHLORIDE [Concomitant]
  4. CITALOPRAM HYDROBROMIDE [Concomitant]
  5. VENLAFAXINE [Concomitant]
  6. IBUPROFEN [Concomitant]
  7. ASPIRIN [Concomitant]
  8. VITAMIN D [Concomitant]
  9. LIDOCAINE PATCH [Concomitant]

REACTIONS (7)
  - Depression [None]
  - Condition aggravated [None]
  - Suicidal ideation [None]
  - Tachyphrenia [None]
  - Drug dose omission [None]
  - Feeling abnormal [None]
  - Mental impairment [None]
